FAERS Safety Report 8457620-7 (Version None)
Quarter: 2012Q2

REPORT INFORMATION
  Report Type: 
  Country: None (occurrence: None)
  Receive Date: 20120622
  Receipt Date: 20120608
  Transmission Date: 20120825
  Serious: Yes (Hospitalization)
  Sender: FDA-Public Use
  Company Number: GB-ACCORD-013730

PATIENT
  Age: 71 Year
  Sex: Male

DRUGS (7)
  1. CARVEDILOL [Concomitant]
     Route: 048
     Dates: start: 20111014
  2. CYANOCOBALAMIN [Concomitant]
     Route: 048
     Dates: start: 20110201
  3. GLIMEPIRIDE [Concomitant]
     Route: 048
     Dates: start: 20100728
  4. PERINDOPRIL ERBUMINE [Concomitant]
     Route: 048
     Dates: start: 20111014
  5. METFORMIN HCL [Concomitant]
     Dates: start: 20110728
  6. SIMVASTATIN [Suspect]
     Dosage: TAKEN AT NIGHT.
     Route: 048
     Dates: start: 20120101, end: 20120502
  7. ASPIRIN [Concomitant]
     Route: 048
     Dates: start: 20111209

REACTIONS (4)
  - BLOOD CREATININE INCREASED [None]
  - URINE OUTPUT DECREASED [None]
  - HYPERKALAEMIA [None]
  - RHABDOMYOLYSIS [None]
